FAERS Safety Report 6369601-8 (Version None)
Quarter: 2009Q3

REPORT INFORMATION
  Report Type: 
  Country: None (occurrence: None)
  Receive Date: 20090923
  Receipt Date: 20090914
  Transmission Date: 20100115
  Serious: Yes (Congenital Anomaly)
  Sender: FDA-Public Use
  Company Number: PHHY2009BR37701

PATIENT
  Sex: Male
  Weight: 2.8 kg

DRUGS (1)
  1. TEGRETOL [Suspect]
     Dosage: MATERNAL DOSE : 400MG 1.5 TABLET TWICE DAILY MORNING AND NIGHT
     Route: 064

REACTIONS (7)
  - CONGENITAL HAND MALFORMATION [None]
  - DRUG EXPOSURE DURING PREGNANCY [None]
  - FINGER DEFORMITY [None]
  - OESOPHAGEAL ATRESIA [None]
  - SURGERY [None]
  - VACTERL SYNDROME [None]
  - VESICOURETERIC REFLUX [None]
